FAERS Safety Report 26045941 (Version 1)
Quarter: 2025Q4

REPORT INFORMATION
  Report Type: Spontaneous
  Country: AU (occurrence: AU)
  Receive Date: 20251114
  Receipt Date: 20251114
  Transmission Date: 20260118
  Serious: Yes (Hospitalization, Other)
  Sender: RANBAXY
  Company Number: AU-SUN PHARMACEUTICAL INDUSTRIES LTD-2025R1-536435

PATIENT
  Age: 73 Year
  Sex: Male

DRUGS (3)
  1. TICAGRELOR [Suspect]
     Active Substance: TICAGRELOR
     Indication: Coronary arterial stent insertion
     Dosage: 90 MILLIGRAM
     Route: 065
     Dates: start: 20250520, end: 20250712
  2. ASPIRIN [Concomitant]
     Active Substance: ASPIRIN
     Indication: Coronary arterial stent insertion
     Route: 065
  3. ROSUVASTATIN CALCIUM [Concomitant]
     Active Substance: ROSUVASTATIN CALCIUM
     Indication: Coronary arterial stent insertion
     Route: 065

REACTIONS (1)
  - Dyspnoea [Recovered/Resolved]

NARRATIVE: CASE EVENT DATE: 20250710
